FAERS Safety Report 5525727-X (Version None)
Quarter: 2007Q4

REPORT INFORMATION
  Report Type: 
  Country: None (occurrence: None)
  Receive Date: 20071126
  Receipt Date: 20071112
  Transmission Date: 20080405
  Serious: Yes (Other)
  Sender: FDA-Public Use
  Company Number: CH-ROCHE-531215

PATIENT
  Age: 79 Year
  Sex: Female

DRUGS (21)
  1. ROCEPHIN [Suspect]
     Indication: BRONCHOPNEUMONIA
     Route: 042
     Dates: start: 20070516, end: 20070529
  2. ROCEPHIN [Suspect]
     Route: 042
     Dates: start: 20070626, end: 20070702
  3. LIQUAEMIN INJ [Suspect]
     Indication: DRUG USE FOR UNKNOWN INDICATION
     Route: 058
     Dates: start: 20070512, end: 20070520
  4. SINTROM [Interacting]
     Indication: ATRIAL FIBRILLATION
     Route: 048
     Dates: start: 20070516
  5. SINTROM [Interacting]
     Dosage: DOSE REDUCED
     Route: 048
  6. SINTROM [Interacting]
     Dosage: BEFORE THE EVENTS.
     Route: 048
  7. PLAVIX [Suspect]
     Indication: DRUG USE FOR UNKNOWN INDICATION
     Dosage: DOSE FORM: FILM COATED TABLETS.
     Route: 065
     Dates: start: 20040101
  8. ACETAMINOPHEN [Concomitant]
     Dosage: FILM COATED TABLETS.
     Route: 048
     Dates: start: 20070511
  9. LAXOBERON [Concomitant]
     Dosage: DOSING AMOUNT: 20 GTT DROPS.
     Route: 048
     Dates: start: 20070514
  10. MOVICOL [Concomitant]
     Dosage: STRENGTH REPORTED AS: 178.5MG/46.6 MG/350.7MG/13.125 GRAM
     Route: 048
     Dates: start: 20070511
  11. SORTIS [Concomitant]
     Dosage: DOSE FORM REPORTED :FILM COATED TABLETS.
     Route: 048
     Dates: start: 20040101
  12. GLUCOPHAGE [Concomitant]
     Dosage: DOSE FORM: FILM COATED TABLETS.
     Route: 048
  13. TOREM [Concomitant]
     Route: 048
     Dates: start: 20050401
  14. AMLODIPINE [Concomitant]
     Route: 048
     Dates: start: 20060101
  15. MORPHINE [Concomitant]
     Route: 048
     Dates: start: 20070512
  16. STILNOX [Concomitant]
     Dates: start: 20070511
  17. DIGOXIN [Concomitant]
     Dates: start: 20060101
  18. CALCIMAGON-D3 [Concomitant]
     Route: 048
     Dates: start: 20060101
  19. VITARUBIN [Concomitant]
     Route: 058
     Dates: start: 20070101, end: 20070630
  20. PASPERTIN [Concomitant]
     Route: 048
     Dates: start: 20070512
  21. ACTRAPID [Concomitant]
     Dosage: DRUG NAME: INSULIN ACTRAPID.
     Route: 058
     Dates: start: 20070518

REACTIONS (2)
  - DRUG INTERACTION [None]
  - INTERNATIONAL NORMALISED RATIO INCREASED [None]
